FAERS Safety Report 12930940 (Version 1)
Quarter: 2016Q4

REPORT INFORMATION
  Report Type: Report from Study
  Country: BR (occurrence: BR)
  Receive Date: 20161110
  Receipt Date: 20161110
  Transmission Date: 20170207
  Serious: Yes (Other)
  Sender: FDA-Public Use
  Company Number: PHHY2014BR136750

PATIENT
  Sex: Male
  Weight: 82 kg

DRUGS (2)
  1. SANDOSTATIN LAR DEPOT [Suspect]
     Active Substance: OCTREOTIDE ACETATE
     Indication: PITUITARY TUMOUR
     Dosage: 2 DF, EVERY 30 DAYS
     Route: 065
     Dates: start: 2006
  2. SANDOSTATIN LAR DEPOT [Suspect]
     Active Substance: OCTREOTIDE ACETATE
     Indication: ACROMEGALY
     Dosage: 40 MG, QMO
     Route: 065

REACTIONS (5)
  - Cerebrovascular accident [Unknown]
  - Neoplasm progression [Unknown]
  - Blood glucose increased [Unknown]
  - Syncope [Unknown]
  - Blood pressure fluctuation [Unknown]
